FAERS Safety Report 11294769 (Version 1)
Quarter: 2015Q3

REPORT INFORMATION
  Report Type: Spontaneous
  Country: None (occurrence: None)
  Receive Date: 20150722
  Receipt Date: 20150722
  Transmission Date: 20151125
  Serious: No
  Sender: FDA-Public Use
  Company Number: None

PATIENT
  Age: 36 Year
  Sex: Female
  Weight: 104.33 kg

DRUGS (6)
  1. GENERIC ZYRTEC [Concomitant]
  2. CALCIUM SUPPLEMENTS [Concomitant]
     Active Substance: CALCIUM
  3. TRIAMTERENE/HYDROCHLOROTHYAZIDE [Concomitant]
  4. AZITHROMYCIN [Suspect]
     Active Substance: AZITHROMYCIN ANHYDROUS
     Indication: SINUSITIS
     Route: 048
     Dates: start: 20150713, end: 20150717
  5. LEVOTHYROXINE. [Concomitant]
     Active Substance: LEVOTHYROXINE
  6. SUBLINGUAL ALLGERY DROPS [Concomitant]

REACTIONS (2)
  - Weight increased [None]
  - Fluid retention [None]

NARRATIVE: CASE EVENT DATE: 20150720
